FAERS Safety Report 10921958 (Version 2)
Quarter: 2015Q1

REPORT INFORMATION
  Report Type: Spontaneous
  Country: CO (occurrence: CO)
  Receive Date: 20150317
  Receipt Date: 20150318
  Transmission Date: 20150721
  Serious: Yes (Other)
  Sender: FDA-Public Use
  Company Number: CO-BAYER-2015-036386

PATIENT
  Age: 21 Year
  Sex: Female

DRUGS (2)
  1. METFORMIN [Concomitant]
     Active Substance: METFORMIN HYDROCHLORIDE
     Dosage: UNK
     Dates: start: 2014
  2. MIRENA [Suspect]
     Active Substance: LEVONORGESTREL
     Indication: POLYCYSTIC OVARIES
     Dosage: 20 MCG/24HR, CONT
     Route: 015
     Dates: start: 20150307

REACTIONS (3)
  - Abdominal pain [Recovered/Resolved]
  - Product use issue [None]
  - Haematemesis [Recovered/Resolved]

NARRATIVE: CASE EVENT DATE: 20150307
